FAERS Safety Report 6239692-3 (Version None)
Quarter: 2009Q2

REPORT INFORMATION
  Report Type: 
  Country: None (occurrence: None)
  Receive Date: 20090622
  Receipt Date: 20090616
  Transmission Date: 20091009
  Serious: Yes (Hospitalization)
  Sender: FDA-Public Use
  Company Number: AT-JNJCH-2009016422

PATIENT
  Age: 65 Year
  Sex: Female

DRUGS (1)
  1. REGAINE 2% [Suspect]
     Indication: DRUG USE FOR UNKNOWN INDICATION
     Dosage: TEXT:ABOUT 15 GRAM, UNSPECIFIED
     Route: 048

REACTIONS (5)
  - ACCIDENTAL EXPOSURE [None]
  - ACCIDENTAL OVERDOSE [None]
  - HYPOTENSION [None]
  - NAUSEA [None]
  - SINUS TACHYCARDIA [None]
